FAERS Safety Report 14987196 (Version 2)
Quarter: 2018Q2

REPORT INFORMATION
  Report Type: Spontaneous
  Country: DE (occurrence: DE)
  Receive Date: 20180608
  Receipt Date: 20180627
  Transmission Date: 20180711
  Serious: Yes (Hospitalization, Other)
  Sender: FDA-Public Use
  Company Number: DE-TEVA-2018-DE-903431

PATIENT
  Age: 62 Year
  Sex: Female
  Weight: 58 kg

DRUGS (8)
  1. NIVOLUMAB [Suspect]
     Active Substance: NIVOLUMAB
     Dosage: 3 MG/KG/KG, ACCORDING TO SCHEME, SOLUTION FOR INJECTION / INFUSION
     Route: 042
  2. DENOSUMAB [Concomitant]
     Active Substance: DENOSUMAB
     Dosage: 120 MG, ACCORDING TO SCHEME, SOLUTION FOR INJECTION / INFUSION
     Route: 042
  3. IBUPROFEN. [Suspect]
     Active Substance: IBUPROFEN
     Dosage: 0.5-0.5-0.5-0,
     Route: 048
  4. METAMIZOLE [Suspect]
     Active Substance: METAMIZOLE
     Dosage: 1-1-1-1,
     Route: 048
  5. COLECALCIFEROL [Concomitant]
     Active Substance: CHOLECALCIFEROL
     Dosage: 500 IE, 1-0-0-0,
     Route: 048
  6. LACTULOSE. [Concomitant]
     Active Substance: LACTULOSE
     Dosage: 1-0-0-0,
     Route: 048
  7. ENOXAPARIN [Concomitant]
     Active Substance: ENOXAPARIN
     Dosage: 0-0-1-0, SOLUTION FOR INJECTION / INFUSION
     Route: 058
  8. LEVOTHYROXINE SODIUM. [Concomitant]
     Active Substance: LEVOTHYROXINE SODIUM
     Dosage: 1-0-0-0,
     Route: 048

REACTIONS (6)
  - Blister [Unknown]
  - Dyspnoea [Unknown]
  - General physical health deterioration [Unknown]
  - Pruritus [Unknown]
  - Dermatitis bullous [Unknown]
  - Rash [Unknown]
